FAERS Safety Report 9084797 (Version 1)
Quarter: 2013Q1

REPORT INFORMATION
  Report Type: Spontaneous
  Country: US (occurrence: US)
  Receive Date: 20130131
  Receipt Date: 20130131
  Transmission Date: 20140127
  Serious: No
  Sender: FDA-Public Use
  Company Number: US-PFIZER INC-2013030742

PATIENT
  Age: 22 Year
  Sex: Male
  Weight: 75.28 kg

DRUGS (2)
  1. ALSUMA [Suspect]
     Indication: MIGRAINE
     Dosage: 6.0/0.5 MG/ML, AS NEEDED
     Dates: start: 20130103
  2. DEPAKOTE [Concomitant]
     Indication: MIGRAINE
     Dosage: 500 MG,DAILY
     Dates: start: 20130103

REACTIONS (3)
  - Product quality issue [Unknown]
  - Drug administration error [Unknown]
  - Migraine [Unknown]
